FAERS Safety Report 13714105 (Version 1)
Quarter: 2017Q3

REPORT INFORMATION
  Report Type: Report from Study
  Country: US (occurrence: US)
  Receive Date: 20170704
  Receipt Date: 20170704
  Transmission Date: 20171127
  Serious: Yes (Hospitalization, Other)
  Sender: FDA-Public Use
  Company Number: US-ROCHE-1948976

PATIENT

DRUGS (11)
  1. MUROMONAB-CD3 [Suspect]
     Active Substance: MUROMONAB-CD3
     Indication: PROPHYLAXIS AGAINST TRANSPLANT REJECTION
     Route: 065
  2. SULFAMETHOXAZOLE/TRIMETHOPRIM [Concomitant]
     Active Substance: SULFAMETHOXAZOLE\TRIMETHOPRIM
     Route: 065
  3. ANTITHYMOCYTE IMMUNOGLOBULIN [Concomitant]
     Active Substance: THYMOCYTE IMMUNE GLOBULIN NOS
     Route: 065
  4. MYCOPHENOLATE MOFETIL. [Suspect]
     Active Substance: MYCOPHENOLATE MOFETIL
     Indication: PROPHYLAXIS AGAINST TRANSPLANT REJECTION
     Route: 048
  5. METHYLPREDNISOLONE. [Suspect]
     Active Substance: METHYLPREDNISOLONE
     Route: 042
  6. GANCICLOVIR. [Concomitant]
     Active Substance: GANCICLOVIR
     Route: 065
  7. TACROLIMUS. [Suspect]
     Active Substance: TACROLIMUS
     Indication: PROPHYLAXIS AGAINST TRANSPLANT REJECTION
     Route: 065
  8. METHYLPREDNISOLONE. [Suspect]
     Active Substance: METHYLPREDNISOLONE
     Route: 048
  9. METHYLPREDNISOLONE. [Suspect]
     Active Substance: METHYLPREDNISOLONE
     Indication: PROPHYLAXIS AGAINST TRANSPLANT REJECTION
     Route: 042
  10. AZATHIOPRINE. [Suspect]
     Active Substance: AZATHIOPRINE
     Indication: PROPHYLAXIS AGAINST TRANSPLANT REJECTION
     Route: 042
  11. CYCLOSPORINE. [Suspect]
     Active Substance: CYCLOSPORINE
     Indication: PROPHYLAXIS AGAINST TRANSPLANT REJECTION
     Route: 065

REACTIONS (25)
  - Leukopenia [Unknown]
  - Gastritis [Unknown]
  - Sepsis [Unknown]
  - Fungal infection [Unknown]
  - Oesophagitis [Unknown]
  - Pancreatic abscess [Unknown]
  - Peripancreatic fluid collection [Unknown]
  - Urinary tract infection [Unknown]
  - Abdominal infection [Unknown]
  - Postoperative wound infection [Unknown]
  - Cytomegalovirus infection [Unknown]
  - Diarrhoea [Unknown]
  - Pancreatitis [Unknown]
  - Vomiting [Unknown]
  - Lymphoma [Unknown]
  - Duodenitis [Unknown]
  - Cellulitis [Unknown]
  - Pseudocyst [Unknown]
  - Neoplasm malignant [Unknown]
  - Bacterial infection [Unknown]
  - Post transplant lymphoproliferative disorder [Unknown]
  - Peritonitis [Unknown]
  - Viral infection [Unknown]
  - Infection [Unknown]
  - Opportunistic infection [Unknown]
